FAERS Safety Report 11195246 (Version 2)
Quarter: 2015Q2

REPORT INFORMATION
  Report Type: Spontaneous
  Country: EG (occurrence: EG)
  Receive Date: 20150617
  Receipt Date: 20150630
  Transmission Date: 20150821
  Serious: Yes (Death)
  Sender: FDA-Public Use
  Company Number: EG-SA-2015SA083031

PATIENT
  Age: 5 Year
  Sex: Male
  Weight: 16.5 kg

DRUGS (1)
  1. CEREZYME [Suspect]
     Active Substance: IMIGLUCERASE
     Indication: GAUCHER^S DISEASE TYPE III
     Dosage: 45
     Route: 042
     Dates: start: 20110211, end: 20150514

REACTIONS (5)
  - Bronchopneumonia [Fatal]
  - Cough [Fatal]
  - Dyspnoea [Fatal]
  - Bronchospasm [Fatal]
  - Respiratory failure [Fatal]

NARRATIVE: CASE EVENT DATE: 2015
